FAERS Safety Report 20475878 (Version 5)
Quarter: 2022Q2

REPORT INFORMATION
  Report Type: Report from Study
  Country: US (occurrence: US)
  Receive Date: 20220215
  Receipt Date: 20220621
  Transmission Date: 20220720
  Serious: Yes (Hospitalization, Other)
  Sender: FDA-Public Use
  Company Number: US-TAKEDA-2021TUS082775

PATIENT
  Sex: Male
  Weight: 91 kg

DRUGS (26)
  1. GLASSIA [Suspect]
     Active Substance: .ALPHA.1-PROTEINASE INHIBITOR HUMAN
     Indication: Chronic obstructive pulmonary disease
     Dosage: 60 MILLIGRAM/KILOGRAM, 1/WEEK
     Route: 042
     Dates: start: 20211206
  2. GLASSIA [Suspect]
     Active Substance: .ALPHA.1-PROTEINASE INHIBITOR HUMAN
     Indication: Chronic obstructive pulmonary disease
     Dosage: 60 MILLIGRAM/KILOGRAM, 1/WEEK
     Route: 042
     Dates: start: 20211206
  3. DIPHENHYDRAMINE [Concomitant]
     Active Substance: DIPHENHYDRAMINE
  4. ENTRESTO [Concomitant]
     Active Substance: SACUBITRIL\VALSARTAN
  5. EPINEPHRINE [Concomitant]
     Active Substance: EPINEPHRINE
  6. SODIUM CHLORIDE [Concomitant]
     Active Substance: SODIUM CHLORIDE
  7. WELLBUTRIN [Concomitant]
     Active Substance: BUPROPION HYDROCHLORIDE
  8. BYSTOLIC [Concomitant]
     Active Substance: NEBIVOLOL HYDROCHLORIDE
  9. SINGULAIR [Concomitant]
     Active Substance: MONTELUKAST SODIUM
  10. XOLAIR [Concomitant]
     Active Substance: OMALIZUMAB
  11. VITAMINS [Concomitant]
     Active Substance: VITAMINS
  12. LASIX [Concomitant]
     Active Substance: FUROSEMIDE
  13. TRAVOPROST [Concomitant]
     Active Substance: TRAVOPROST
  14. ZOCOR [Concomitant]
     Active Substance: SIMVASTATIN
  15. SYNTHROID [Concomitant]
     Active Substance: LEVOTHYROXINE SODIUM
  16. ADVAIR HFA [Concomitant]
     Active Substance: FLUTICASONE PROPIONATE\SALMETEROL XINAFOATE
  17. INCRUSE ELLIPTA [Concomitant]
     Active Substance: UMECLIDINIUM BROMIDE
  18. LIDOCAINE [Concomitant]
     Active Substance: LIDOCAINE
  19. Hyper [Concomitant]
  20. ELIQUIS [Concomitant]
     Active Substance: APIXABAN
  21. TYLENOL [Concomitant]
     Active Substance: ACETAMINOPHEN
  22. ASPIRIN [Concomitant]
     Active Substance: ASPIRIN
  23. DEXILANT [Concomitant]
     Active Substance: DEXLANSOPRAZOLE
  24. ZYRTEC [Concomitant]
     Active Substance: CETIRIZINE HYDROCHLORIDE
  25. PLAVIX [Concomitant]
     Active Substance: CLOPIDOGREL BISULFATE
  26. MUCINEX [Concomitant]
     Active Substance: GUAIFENESIN

REACTIONS (13)
  - Hospitalisation [Unknown]
  - Skin cancer [Unknown]
  - Haemorrhage [Unknown]
  - Left atrial appendage closure implant [Unknown]
  - Dyspnoea [Unknown]
  - Wheezing [Unknown]
  - Cough [Unknown]
  - Epistaxis [Recovered/Resolved]
  - Fatigue [Unknown]
  - Decreased appetite [Unknown]
  - Insomnia [Unknown]
  - Contusion [Unknown]
  - Limb injury [Unknown]
